FAERS Safety Report 5091341-6 (Version None)
Quarter: 2006Q3

REPORT INFORMATION
  Report Type: 
  Country: None (occurrence: None)
  Receive Date: 20060829
  Receipt Date: 20060330
  Transmission Date: 20061208
  Serious: No
  Sender: FDA-Public Use
  Company Number: US-GLAXOSMITHKLINE-A0599733A

PATIENT
  Sex: Female

DRUGS (2)
  1. BECONASE [Suspect]
     Route: 045
  2. FLONASE [Suspect]
     Route: 045

REACTIONS (1)
  - DRUG INEFFECTIVE [None]
